FAERS Safety Report 11628057 (Version 1)
Quarter: 2015Q4

REPORT INFORMATION
  Report Type: Report from Study
  Country: DE (occurrence: None)
  Receive Date: 20151009
  Receipt Date: 20151009
  Transmission Date: 20160304
  Serious: Yes (Other)
  Sender: FDA-Public Use
  Company Number: HRA-CDB20150343

PATIENT
  Age: 32 Year
  Sex: Female
  Weight: 70 kg

DRUGS (1)
  1. ELLAONE 30 MG TABLETTE (ELLAONE) (ULIPRISTAL ACETATE) [Suspect]
     Active Substance: ULIPRISTAL ACETATE
     Indication: POST COITAL CONTRACEPTION
     Dosage: (1 DOSAGE FORMS, 1 IN 1 D)
     Dates: start: 20150806, end: 20150806

REACTIONS (3)
  - Drug ineffective [None]
  - Pregnancy test positive [None]
  - Vanishing twin syndrome [None]

NARRATIVE: CASE EVENT DATE: 2015
